FAERS Safety Report 14367400 (Version 1)
Quarter: 2018Q1

REPORT INFORMATION
  Report Type: Spontaneous
  Country: US (occurrence: US)
  Receive Date: 20180109
  Receipt Date: 20180109
  Transmission Date: 20180509
  Serious: No
  Sender: FDA-Public Use
  Company Number: US-TARO-2017TAR00875

PATIENT
  Age: 44 Year
  Sex: Female
  Weight: 77.98 kg

DRUGS (6)
  1. FACE WASH (SODIUM SULFACETAMIDE 10% AND SULFUR 5% CLEANSER) [Concomitant]
  2. METRONIDAZOLE GEL USP, 1% [Suspect]
     Active Substance: METRONIDAZOLE
     Indication: ROSACEA
     Dosage: UNK, 1X/DAY
     Route: 061
  3. METRONIDAZOLE GEL USP, 1% [Suspect]
     Active Substance: METRONIDAZOLE
     Dosage: UNK, 1X/DAY
     Route: 061
     Dates: start: 20171013, end: 201710
  4. MULTIVITAMIN [Concomitant]
     Active Substance: VITAMINS
  5. METRONIDAZOLE GEL USP, 1% [Suspect]
     Active Substance: METRONIDAZOLE
     Dosage: UNK UNK, 1X/DAY
     Route: 061
     Dates: start: 20171006, end: 201710
  6. UNSPECIFIED BIRTH CONTROL [Concomitant]
     Active Substance: UNSPECIFIED INGREDIENT

REACTIONS (6)
  - Burning sensation [Recovered/Resolved]
  - Product quality issue [Recovered/Resolved]
  - Pruritus [Recovered/Resolved]
  - Acne [Recovered/Resolved]
  - Drug ineffective [Recovered/Resolved]
  - Erythema [Recovered/Resolved]

NARRATIVE: CASE EVENT DATE: 201710
